FAERS Safety Report 23659119 (Version 3)
Quarter: 2024Q2

REPORT INFORMATION
  Report Type: Spontaneous
  Country: PK (occurrence: PK)
  Receive Date: 20240321
  Receipt Date: 20240517
  Transmission Date: 20240715
  Serious: Yes (Death, Hospitalization, Other)
  Sender: FDA-Public Use
  Company Number: PK-SA-SAC20240319000512

PATIENT
  Age: 8 Year
  Sex: Male

DRUGS (4)
  1. CEREZYME [Suspect]
     Active Substance: IMIGLUCERASE
     Indication: Lysosomal storage disorder
     Dosage: 60 IU/KG, QOW
     Route: 041
     Dates: start: 202012, end: 202312
  2. CEREZYME [Suspect]
     Active Substance: IMIGLUCERASE
     Indication: Gaucher^s disease
  3. VITAMINS NOS [Concomitant]
     Active Substance: VITAMINS
     Dosage: UNK
  4. MANNITOL [Concomitant]
     Active Substance: MANNITOL
     Dosage: UNK

REACTIONS (7)
  - Meningitis bacterial [Fatal]
  - Pyrexia [Fatal]
  - Headache [Fatal]
  - Vomiting [Fatal]
  - Cardio-respiratory arrest [Fatal]
  - Dehydration [Fatal]
  - Somnolence [Fatal]

NARRATIVE: CASE EVENT DATE: 20231201
